FAERS Safety Report 7506647-8 (Version None)
Quarter: 2011Q2

REPORT INFORMATION
  Report Type: 
  Country: None (occurrence: None)
  Receive Date: 20110526
  Receipt Date: 20110516
  Transmission Date: 20111010
  Serious: Yes (Hospitalization, Other)
  Sender: FDA-Public Use
  Company Number: US-NAPPMUNDI-USA-2011-0068230

PATIENT
  Age: 83 Year
  Sex: Female

DRUGS (2)
  1. OXYCODONE HCL [Suspect]
     Indication: PRODUCT USED FOR UNKNOWN INDICATION
     Dosage: 40 MG, DAILY
  2. HYDROCODONE BITARTRATE [Suspect]
     Indication: PRODUCT USED FOR UNKNOWN INDICATION
     Dosage: UNK

REACTIONS (10)
  - TORSADE DE POINTES [None]
  - AGITATION [None]
  - TROPONIN INCREASED [None]
  - DRUG WITHDRAWAL SYNDROME [None]
  - HYPOXIA [None]
  - HYPOTENSION [None]
  - DYSPNOEA [None]
  - CONFUSIONAL STATE [None]
  - ELECTROCARDIOGRAM QT PROLONGED [None]
  - BRAIN NATRIURETIC PEPTIDE INCREASED [None]
